FAERS Safety Report 14703237 (Version 1)
Quarter: 2018Q2

REPORT INFORMATION
  Report Type: Spontaneous
  Country: KR (occurrence: KR)
  Receive Date: 20180402
  Receipt Date: 20180402
  Transmission Date: 20180711
  Serious: Yes (Other)
  Sender: FDA-Public Use
  Company Number: KR-ALKEM LABORATORIES LIMITED-KR-ALKEM-2018-01765

PATIENT
  Age: 52 Year
  Sex: Female

DRUGS (1)
  1. LINEZOLID. [Suspect]
     Active Substance: LINEZOLID
     Indication: URINARY TRACT INFECTION ENTEROCOCCAL
     Dosage: UNK
     Route: 065

REACTIONS (2)
  - Shock [Recovered/Resolved]
  - Lactic acidosis [Recovered/Resolved]
